FAERS Safety Report 9521467 (Version 2)
Quarter: 2013Q4

REPORT INFORMATION
  Report Type: Spontaneous
  Country: US (occurrence: None)
  Receive Date: 20130911
  Receipt Date: 20131031
  Transmission Date: 20140711
  Serious: Yes (Hospitalization)
  Sender: FDA-Public Use
  Company Number: 2013SGN00522

PATIENT
  Age: 78 Year
  Sex: Male
  Weight: 73.9 kg

DRUGS (12)
  1. BRENTUXIMAB VEDOTIN [Suspect]
     Indication: NON-HODGKIN^S LYMPHOMA
     Route: 042
     Dates: start: 20130122, end: 20130806
  2. ASPIRIN (ASPIRIN) [Concomitant]
  3. FISH OIL (FISH OIL) [Concomitant]
  4. METOPROLOL (METOPROLOL) [Concomitant]
  5. NITROGLYCERIN (NITROGLYCERIN) [Concomitant]
  6. PLAVIX (CLOPIDOGREL SULFATE) [Concomitant]
  7. SIMVASTATIN (SIMVASTATIN) [Concomitant]
  8. GABAPENTIN (GABAPENTIN) [Concomitant]
  9. ACYCLOVIR (ACYCLOVIR) [Concomitant]
  10. PRILOSEC [Concomitant]
  11. PREDNISONE (PREDNISONE) [Concomitant]
  12. HYDROCORTISONE (HYDROCORTISONE) [Concomitant]

REACTIONS (2)
  - Pneumonia [None]
  - Neuropathy peripheral [None]
